FAERS Safety Report 5323724-0 (Version None)
Quarter: 2007Q2

REPORT INFORMATION
  Report Type: 
  Country: None (occurrence: None)
  Receive Date: 20070514
  Receipt Date: 20070509
  Transmission Date: 20071010
  Serious: Yes (Life-Threatening, Hospitalization)
  Sender: FDA-Public Use
  Company Number: DE-AVENTIS-200711153DE

PATIENT
  Age: 68 Year
  Sex: Male

DRUGS (8)
  1. DOCETAXEL [Suspect]
     Route: 042
     Dates: start: 20070228, end: 20070405
  2. CETUXIMAB [Suspect]
     Route: 042
     Dates: start: 20070315, end: 20070315
  3. CETUXIMAB [Suspect]
     Route: 042
     Dates: start: 20070322, end: 20070329
  4. CETUXIMAB [Suspect]
     Route: 042
     Dates: start: 20070405, end: 20070405
  5. CARBOPLATIN [Suspect]
     Dosage: DOSE: AUC5
     Route: 042
     Dates: start: 20070315, end: 20070315
  6. NOVALGIN                           /00039501/ [Concomitant]
     Dosage: DOSE: NOT REPORTED
  7. MAGNESIUM SULFATE [Concomitant]
     Dosage: DOSE: NOT REPORTED
  8. WOBENZYM                           /00598501/ [Concomitant]
     Dosage: DOSE: NOT REPORTED

REACTIONS (4)
  - ALTERED STATE OF CONSCIOUSNESS [None]
  - CEREBROVASCULAR ACCIDENT [None]
  - DYSPHAGIA [None]
  - HEMIPARESIS [None]
